FAERS Safety Report 21645367 (Version 1)
Quarter: 2022Q4

REPORT INFORMATION
  Report Type: Report from Study
  Country: US (occurrence: US)
  Receive Date: 20221126
  Receipt Date: 20221126
  Transmission Date: 20230113
  Serious: Yes (Hospitalization, Other)
  Sender: FDA-Public Use
  Company Number: US-ABBVIE-4214566

PATIENT
  Sex: Female

DRUGS (1)
  1. HUMIRA [Suspect]
     Active Substance: ADALIMUMAB
     Indication: Crohn^s disease
     Dosage: FORM STRENGTH - 40 MILLIGRAM
     Route: 058

REACTIONS (4)
  - Gastrointestinal stoma complication [Recovering/Resolving]
  - Renal impairment [Recovering/Resolving]
  - Gastrointestinal stoma complication [Unknown]
  - Ileostomy [Unknown]
